FAERS Safety Report 24209162 (Version 2)
Quarter: 2024Q3

REPORT INFORMATION
  Report Type: Spontaneous
  Country: JP (occurrence: JP)
  Receive Date: 20240814
  Receipt Date: 20240905
  Transmission Date: 20241017
  Serious: Yes (Life-Threatening, Other)
  Sender: PFIZER
  Company Number: JP-PFIZER INC-PV202400103006

PATIENT

DRUGS (2)
  1. FOSPHENYTOIN SODIUM [Suspect]
     Active Substance: FOSPHENYTOIN SODIUM
     Indication: Status epilepticus
     Dosage: UNK (INITIAL DOSE)
     Route: 042
  2. FOSPHENYTOIN SODIUM [Suspect]
     Active Substance: FOSPHENYTOIN SODIUM
     Dosage: UNK (MAINTENANCE DOSE)
     Route: 042

REACTIONS (2)
  - Anticonvulsant drug level below therapeutic [Unknown]
  - Therapeutic product effect incomplete [Unknown]
